FAERS Safety Report 10213825 (Version 2)
Quarter: 2014Q2

REPORT INFORMATION
  Report Type: Spontaneous
  Country: US (occurrence: US)
  Receive Date: 20140603
  Receipt Date: 20140609
  Transmission Date: 20141212
  Serious: No
  Sender: FDA-Public Use
  Company Number: US-009507513-1406USA001150

PATIENT
  Age: 90 Year
  Sex: Female

DRUGS (13)
  1. OXYTROL FOR WOMEN [Suspect]
     Indication: HYPERTONIC BLADDER
     Dosage: 1 DF, Q4D
     Route: 062
     Dates: start: 20140412
  2. RANEXA [Concomitant]
     Indication: CARDIAC DISORDER
     Dosage: UNK, UNKNOWN
  3. METOPROLOL [Concomitant]
     Indication: CARDIAC DISORDER
     Dosage: UNK, UNKNOWN
  4. LOSARTAN POTASSIUM [Concomitant]
     Indication: CARDIAC DISORDER
     Dosage: UNK, UNKNOWN
  5. SIMVASTATIN [Concomitant]
     Indication: CEREBROVASCULAR ACCIDENT
     Dosage: UNK, UNKNOWN
  6. WARFARIN [Concomitant]
     Indication: CEREBROVASCULAR ACCIDENT
     Dosage: UNK, UNKNOWN
  7. OXYBUTYNIN [Concomitant]
     Indication: BLADDER DISORDER
     Dosage: UNK, UNKNOWN
  8. LEVOTHYROXINE SODIUM [Concomitant]
     Indication: THYROID DISORDER
     Dosage: UNK, UNKNOWN
  9. ZANTAC [Concomitant]
     Indication: PRODUCT USED FOR UNKNOWN INDICATION
     Dosage: UNK, UNKNOWN
  10. IRON (UNSPECIFIED) [Concomitant]
     Indication: PRODUCT USED FOR UNKNOWN INDICATION
     Dosage: UNK, UNKNOWN
  11. TYLENOL [Concomitant]
     Indication: PRODUCT USED FOR UNKNOWN INDICATION
     Dosage: UNK, UNKNOWN
  12. CLARITIN [Concomitant]
     Indication: PRODUCT USED FOR UNKNOWN INDICATION
     Dosage: UNK, UNKNOWN
  13. VITAMIN D (UNSPECIFIED) [Concomitant]
     Indication: PRODUCT USED FOR UNKNOWN INDICATION
     Dosage: UNK, UNKNOWN

REACTIONS (4)
  - Dermatitis contact [Not Recovered/Not Resolved]
  - Pruritus [Unknown]
  - Erythema [Unknown]
  - Off label use [Unknown]
